FAERS Safety Report 12060516 (Version 1)
Quarter: 2016Q1

REPORT INFORMATION
  Report Type: Report from Study
  Country: CA (occurrence: CA)
  Receive Date: 20160210
  Receipt Date: 20160210
  Transmission Date: 20160526
  Serious: Yes (Other)
  Sender: FDA-Public Use
  Company Number: CA-JNJFOC-20160207187

PATIENT
  Age: 32 Year
  Sex: Female
  Weight: 71 kg

DRUGS (2)
  1. REMICADE [Suspect]
     Active Substance: INFLIXIMAB
     Indication: CROHN^S DISEASE
     Route: 042
     Dates: start: 201008
  2. 6-MP [Concomitant]
     Active Substance: MERCAPTOPURINE
     Route: 065

REACTIONS (1)
  - Keratoacanthoma [Recovered/Resolved]

NARRATIVE: CASE EVENT DATE: 201601
